FAERS Safety Report 21731929 (Version 1)
Quarter: 2022Q4

REPORT INFORMATION
  Report Type: Report from Study
  Country: US (occurrence: US)
  Receive Date: 20221215
  Receipt Date: 20221215
  Transmission Date: 20230113
  Serious: No
  Sender: FDA-Public Use
  Company Number: US-ABBVIE-4235589

PATIENT
  Sex: Male

DRUGS (1)
  1. RINVOQ [Suspect]
     Active Substance: UPADACITINIB
     Indication: Rheumatoid arthritis
     Dosage: ER, FORM STRENGTH: 15 MG
     Route: 048
     Dates: start: 20221125

REACTIONS (3)
  - Pain [Unknown]
  - Musculoskeletal stiffness [Unknown]
  - Drug ineffective [Unknown]
